FAERS Safety Report 6519246-1 (Version None)
Quarter: 2009Q4

REPORT INFORMATION
  Report Type: 
  Country: None (occurrence: None)
  Receive Date: 20091228
  Receipt Date: 20091217
  Transmission Date: 20100525
  Serious: Yes (Hospitalization)
  Sender: FDA-Public Use
  Company Number: PHEH2009US18082

PATIENT
  Sex: Female

DRUGS (1)
  1. EXJADE [Suspect]
     Dosage: 250 MG, BID
     Route: 048
     Dates: start: 20090715, end: 20090914

REACTIONS (1)
  - NEOPLASM MALIGNANT [None]
